FAERS Safety Report 7479026-X (Version None)
Quarter: 2011Q2

REPORT INFORMATION
  Report Type: 
  Country: None (occurrence: None)
  Receive Date: 20110513
  Receipt Date: 20110504
  Transmission Date: 20111010
  Serious: Yes (Hospitalization)
  Sender: FDA-Public Use
  Company Number: PHHY2011NL38126

PATIENT
  Sex: Male
  Weight: 93 kg

DRUGS (4)
  1. AZATHIOPRINE [Concomitant]
  2. METOPROLOL TARTRATE [Concomitant]
     Dosage: 2 DF, QD
     Route: 048
  3. TACROLIMUS [Suspect]
     Indication: RENAL TRANSPLANT
     Dosage: 2 DF, DAILY
     Route: 048
     Dates: start: 20110101
  4. NIFEDIPINE [Concomitant]
     Dosage: 1 DF, QD

REACTIONS (1)
  - TOXICITY TO VARIOUS AGENTS [None]
